FAERS Safety Report 7777056-1 (Version None)
Quarter: 2011Q3

REPORT INFORMATION
  Report Type: 
  Country: None (occurrence: None)
  Receive Date: 20110926
  Receipt Date: 20110926
  Transmission Date: 20111222
  Serious: Yes (Other)
  Sender: FDA-Public Use
  Company Number: None

PATIENT
  Age: 52 Year
  Sex: Female
  Weight: 59.42 kg

DRUGS (1)
  1. DEXILANT [Suspect]
     Indication: GASTROOESOPHAGEAL REFLUX DISEASE
     Dosage: 60 MG
     Route: 048
     Dates: start: 20110910, end: 20110923

REACTIONS (5)
  - FATIGUE [None]
  - OROPHARYNGEAL PAIN [None]
  - SINUS CONGESTION [None]
  - ARTHRALGIA [None]
  - BACK PAIN [None]
